FAERS Safety Report 18877674 (Version 3)
Quarter: 2022Q2

REPORT INFORMATION
  Report Type: Other
  Country: US (occurrence: US)
  Receive Date: 20210211
  Receipt Date: 20220609
  Transmission Date: 20220721
  Serious: Yes (Hospitalization)
  Sender: FDA-Public Use
  Company Number: US-INTERCEPT-PM2021000286

PATIENT
  Age: 73 Year
  Sex: Female

DRUGS (15)
  1. OCALIVA [Suspect]
     Active Substance: OBETICHOLIC ACID
     Indication: Primary biliary cholangitis
     Dosage: 5 MILLIGRAM, QW
     Route: 048
     Dates: start: 201910, end: 20210121
  2. OCALIVA [Suspect]
     Active Substance: OBETICHOLIC ACID
     Dosage: 5 MILLIGRAM, QD
     Route: 048
     Dates: end: 2021
  3. OCALIVA [Suspect]
     Active Substance: OBETICHOLIC ACID
     Dosage: 5 MILLIGRAM, QW
     Route: 048
     Dates: start: 20210211
  4. URSODIOL [Concomitant]
     Active Substance: URSODIOL
     Dosage: 4 MILLIGRAM, QHS
     Dates: start: 20210121
  5. FUROSEMIDE [Concomitant]
     Active Substance: FUROSEMIDE
  6. RIFAMPIN [Concomitant]
     Active Substance: RIFAMPIN
  7. SPIRONOLACTONE [Concomitant]
     Active Substance: SPIRONOLACTONE
  8. XIFAXAN [Concomitant]
     Active Substance: RIFAXIMIN
  9. ATORVASTATIN [Concomitant]
     Active Substance: ATORVASTATIN
  10. CARVEDILOL [Concomitant]
     Active Substance: CARVEDILOL
  11. VITAMIN D3 [Concomitant]
     Active Substance: CHOLECALCIFEROL
  12. CHOLESTYRAMINE [Concomitant]
     Active Substance: CHOLESTYRAMINE
  13. LACTULOSE [Concomitant]
     Active Substance: LACTULOSE
  14. PANTOPRAZOLE [Concomitant]
     Active Substance: PANTOPRAZOLE
  15. RIFAXIMIN [Concomitant]
     Active Substance: RIFAXIMIN

REACTIONS (5)
  - Hepatic encephalopathy [Recovering/Resolving]
  - Pruritus [Recovered/Resolved]
  - Off label use [Not Recovered/Not Resolved]
  - Therapy interrupted [Recovered/Resolved]
  - Intentional product misuse [Recovered/Resolved]

NARRATIVE: CASE EVENT DATE: 20191001
